FAERS Safety Report 13476790 (Version 1)
Quarter: 2017Q2

REPORT INFORMATION
  Report Type: Spontaneous
  Country: US (occurrence: US)
  Receive Date: 20170424
  Receipt Date: 20170424
  Transmission Date: 20170830
  Serious: No
  Sender: FDA-Public Use
  Company Number: None

PATIENT
  Age: 48 Year
  Sex: Male

DRUGS (1)
  1. NEXAVAR [Suspect]
     Active Substance: SORAFENIB
     Indication: HEPATIC CANCER
     Dosage: TAKE 2 TABLETS TWICE DAILY BY MOUTH
     Route: 048
     Dates: start: 20170314

REACTIONS (3)
  - Gingival bleeding [None]
  - Diarrhoea [None]
  - Dry skin [None]

NARRATIVE: CASE EVENT DATE: 20170422
